FAERS Safety Report 19992677 (Version 1)
Quarter: 2021Q4

REPORT INFORMATION
  Report Type: Spontaneous
  Country: TR (occurrence: TR)
  Receive Date: 20211025
  Receipt Date: 20211025
  Transmission Date: 20220303
  Serious: Yes (Other)
  Sender: FDA-Public Use
  Company Number: TR-AMNEAL PHARMACEUTICALS-2021-AMRX-04275

PATIENT

DRUGS (2)
  1. ALBENZA [Suspect]
     Active Substance: ALBENDAZOLE
     Indication: Prophylaxis
     Dosage: FIRST CYCLE, 15 MILLIGRAM/KILOGRAM, 1 /DAY
     Route: 065
  2. ALBENZA [Suspect]
     Active Substance: ALBENDAZOLE
     Dosage: SECOND CYCLE, 15 MILLIGRAM/KILOGRAM, 1 /DAY
     Route: 065

REACTIONS (1)
  - Wound infection [Unknown]
